FAERS Safety Report 14672478 (Version 11)
Quarter: 2018Q4

REPORT INFORMATION
  Report Type: Spontaneous
  Country: US (occurrence: US)
  Receive Date: 20180323
  Receipt Date: 20181119
  Transmission Date: 20190204
  Serious: Yes (Other)
  Sender: FDA-Public Use
  Company Number: US-PFIZER INC-2018117154

PATIENT
  Age: 61 Year
  Sex: Female
  Weight: 90.7 kg

DRUGS (17)
  1. LIOTHYRONINE [Concomitant]
     Active Substance: LIOTHYRONINE
     Dosage: UNK
     Dates: start: 2013
  2. ALBUTEROL. [Concomitant]
     Active Substance: ALBUTEROL
     Dosage: UNK, AS NEEDED
     Route: 055
  3. IMODIUM [Concomitant]
     Active Substance: LOPERAMIDE HYDROCHLORIDE
     Dosage: UNK
  4. METOPROLOL. [Concomitant]
     Active Substance: METOPROLOL
     Dosage: UNK
     Dates: start: 20180622
  5. SUTENT [Suspect]
     Active Substance: SUNITINIB MALATE
     Indication: GASTROINTESTINAL STROMAL TUMOUR
     Dosage: 50 MG, CYCLIC [ONCE DAILY FOR 28 DAYS ON, 14 DAYS OFF]
     Dates: start: 20180124, end: 20180817
  6. SINGULAIR [Concomitant]
     Active Substance: MONTELUKAST SODIUM
     Dosage: UNK
     Dates: start: 2013
  7. TORSEMIDE. [Concomitant]
     Active Substance: TORSEMIDE
     Dosage: UNK
     Dates: start: 20180622
  8. HYDROCODONE BITARTRATE AND ACETAMINOPHEN [Concomitant]
     Active Substance: ACETAMINOPHEN\HYDROCODONE BITARTRATE
     Dosage: UNK, AS NEEDED
     Dates: start: 201711
  9. LISINOPRIL. [Concomitant]
     Active Substance: LISINOPRIL
     Dosage: 40 MG, DAILY
     Dates: start: 2013
  10. COMPAZINE [Concomitant]
     Active Substance: PROCHLORPERAZINE MALEATE
     Dosage: UNK, AS NEEDED
     Dates: start: 2014
  11. BENADRYL [Concomitant]
     Active Substance: DIPHENHYDRAMINE HYDROCHLORIDE
     Dosage: UNK, AS NEEDED
  12. SUTENT [Suspect]
     Active Substance: SUNITINIB MALATE
     Dosage: 50 MG, CYCLIC (28 DAYS ON/14 DAYS OFF)
     Dates: start: 20180907
  13. LEVOTHYROXINE. [Concomitant]
     Active Substance: LEVOTHYROXINE
     Dosage: UNK
     Dates: start: 2000
  14. FLONASE [Concomitant]
     Active Substance: FLUTICASONE PROPIONATE
     Dosage: UNK
     Route: 045
     Dates: start: 2013
  15. AMLODIPINE BESYLATE. [Concomitant]
     Active Substance: AMLODIPINE BESYLATE
     Indication: BLOOD PRESSURE ABNORMAL
     Dosage: 10 MG, ONCE DAILY
     Dates: start: 201803
  16. PROTONIX [Concomitant]
     Active Substance: PANTOPRAZOLE SODIUM
     Dosage: UNK
  17. MYLANTA [Concomitant]
     Active Substance: ALUMINUM HYDROXIDE\DIMETHICONE\MAGNESIUM HYDROXIDE
     Dosage: UNK

REACTIONS (40)
  - Chest pain [Recovering/Resolving]
  - Hyperthyroidism [Not Recovered/Not Resolved]
  - Aspiration [Recovering/Resolving]
  - Protein urine present [Unknown]
  - Cough [Recovering/Resolving]
  - Bone pain [Unknown]
  - Weight increased [Unknown]
  - Abdominal tenderness [Unknown]
  - Abdominal distension [Unknown]
  - Renal impairment [Unknown]
  - Neoplasm progression [Unknown]
  - Fatigue [Recovered/Resolved]
  - Pain in extremity [Recovering/Resolving]
  - Rash pruritic [Recovered/Resolved]
  - Skin fissures [Unknown]
  - Skin exfoliation [Unknown]
  - Anal incontinence [Recovering/Resolving]
  - Musculoskeletal discomfort [Recovered/Resolved]
  - Decreased appetite [Unknown]
  - Ageusia [Recovering/Resolving]
  - Abdominal discomfort [Not Recovered/Not Resolved]
  - Gastrooesophageal reflux disease [Unknown]
  - Neuropathy peripheral [Not Recovered/Not Resolved]
  - Anal fissure [Unknown]
  - Hypertension [Recovering/Resolving]
  - Choking [Unknown]
  - Diarrhoea [Not Recovered/Not Resolved]
  - Dyspepsia [Unknown]
  - Stomatitis [Unknown]
  - Blood parathyroid hormone abnormal [Unknown]
  - Gait disturbance [Recovering/Resolving]
  - Rhinitis allergic [Unknown]
  - Rash [Unknown]
  - Abdominal distension [Unknown]
  - Blood blister [Recovered/Resolved]
  - Dysgeusia [Unknown]
  - Hair colour changes [Unknown]
  - Flatulence [Unknown]
  - Arthralgia [Unknown]
  - Abdominal pain [Unknown]

NARRATIVE: CASE EVENT DATE: 2018
